FAERS Safety Report 6586021-1 (Version None)
Quarter: 2010Q1

REPORT INFORMATION
  Report Type: 
  Country: None (occurrence: None)
  Receive Date: 20100216
  Receipt Date: 20100216
  Transmission Date: 20100710
  Serious: Yes (Hospitalization)
  Sender: FDA-Public Use
  Company Number: None

PATIENT
  Sex: Male
  Weight: 73.6 kg

DRUGS (3)
  1. OXALIPLATIN [Suspect]
     Indication: GASTRIC CANCER
     Dosage: 130 MG/M2 D1 IV
     Route: 042
     Dates: start: 20090921
  2. CETUXIMAB [Suspect]
     Indication: GASTRIC CANCER
     Dosage: 250 MG/M2 D1, 8, 15 IV
     Route: 042
     Dates: start: 20090921
  3. XELODA [Suspect]
     Indication: GASTRIC CANCER
     Dosage: 850 MG/M2 D1-14 BID P.O}
     Route: 048
     Dates: start: 20090921

REACTIONS (5)
  - CATHETER SITE ERYTHEMA [None]
  - CHILLS [None]
  - ENTEROBACTER BACTERAEMIA [None]
  - MEDICAL DEVICE COMPLICATION [None]
  - TACHYCARDIA [None]
